FAERS Safety Report 13143322 (Version 1)
Quarter: 2017Q1

REPORT INFORMATION
  Report Type: Spontaneous
  Country: FR (occurrence: FR)
  Receive Date: 20170124
  Receipt Date: 20170124
  Transmission Date: 20170428
  Serious: Yes (Hospitalization)
  Sender: FDA-Public Use
  Company Number: FR-ACTELION-A-CH2017-148260

PATIENT
  Age: 46 Year
  Sex: Male

DRUGS (13)
  1. TRACLEER [Suspect]
     Active Substance: BOSENTAN
     Indication: PULMONARY ARTERIAL HYPERTENSION
     Route: 048
  2. REVATIO [Suspect]
     Active Substance: SILDENAFIL CITRATE
     Indication: PRODUCT USED FOR UNKNOWN INDICATION
     Route: 065
  3. NATISPRAY [Concomitant]
     Active Substance: NITROGLYCERIN
  4. TARDYFERON [Concomitant]
     Active Substance: FERROUS SULFATE
  5. PREVISCAN [Concomitant]
     Active Substance: FLUINDIONE
  6. MODAMIDE [Concomitant]
     Active Substance: AMILORIDE HYDROCHLORIDE
  7. ESIDREX [Suspect]
     Active Substance: HYDROCHLOROTHIAZIDE
     Indication: PRODUCT USED FOR UNKNOWN INDICATION
     Route: 065
  8. LEVOTHYROX [Concomitant]
     Active Substance: LEVOTHYROXINE
  9. PANTOPRAZOLE [Suspect]
     Active Substance: PANTOPRAZOLE SODIUM
     Indication: PRODUCT USED FOR UNKNOWN INDICATION
     Route: 065
  10. BURINEX [Concomitant]
     Active Substance: BUMETANIDE
  11. CARDENSIEL [Concomitant]
     Active Substance: BISOPROLOL FUMARATE
  12. KALEORID [Concomitant]
     Active Substance: POTASSIUM CHLORIDE
  13. PARLODEL [Concomitant]
     Active Substance: BROMOCRIPTINE MESYLATE

REACTIONS (12)
  - Pancytopenia [Not Recovered/Not Resolved]
  - Haemolytic anaemia [Not Recovered/Not Resolved]
  - Cholestasis [Unknown]
  - Haptoglobin decreased [Not Recovered/Not Resolved]
  - Haemoglobin decreased [Not Recovered/Not Resolved]
  - Packed red blood cell transfusion [Unknown]
  - Thrombocytopenia [Not Recovered/Not Resolved]
  - Lymphopenia [Not Recovered/Not Resolved]
  - Blood creatine increased [Unknown]
  - Renal failure [Unknown]
  - Leukopenia [Not Recovered/Not Resolved]
  - Iron deficiency [Unknown]

NARRATIVE: CASE EVENT DATE: 201606
